FAERS Safety Report 7915087-9 (Version None)
Quarter: 2011Q4

REPORT INFORMATION
  Report Type: 
  Country: None (occurrence: None)
  Receive Date: 20111115
  Receipt Date: 20111109
  Transmission Date: 20120403
  Serious: Yes (Hospitalization, Other)
  Sender: FDA-Public Use
  Company Number: US-MERCK-1104USA01379

PATIENT
  Age: 64 Year
  Sex: Female
  Weight: 62 kg

DRUGS (14)
  1. FOSAMAX [Suspect]
     Indication: OSTEOPOROSIS PROPHYLAXIS
     Route: 048
     Dates: start: 20021126, end: 20090211
  2. NIACIN [Concomitant]
     Route: 065
     Dates: start: 19910101
  3. PREMARIN [Concomitant]
     Route: 065
     Dates: end: 20110501
  4. NIACIN [Concomitant]
     Route: 065
     Dates: start: 19910101
  5. OMEGA-3 MARINE TRIGLYCERIDES [Concomitant]
     Route: 065
     Dates: start: 19960101
  6. FORTEO [Suspect]
     Indication: OSTEOPOROSIS
     Route: 065
     Dates: start: 20101001
  7. ALENDRONATE SODIUM [Suspect]
     Route: 065
     Dates: start: 20090105, end: 20100623
  8. FOSAMAX [Suspect]
     Indication: OSTEOPENIA
     Route: 048
     Dates: start: 20021126, end: 20090211
  9. VIOXX [Concomitant]
     Indication: OSTEOARTHRITIS
     Route: 048
  10. VIOXX [Concomitant]
     Route: 048
  11. FOSAMAX [Suspect]
     Route: 048
     Dates: start: 19990816, end: 20090921
  12. FOSAMAX [Suspect]
     Route: 048
     Dates: start: 19990816, end: 20090921
  13. VITAMINS (UNSPECIFIED) [Concomitant]
     Route: 065
  14. CALCIUM (UNSPECIFIED) [Concomitant]
     Route: 065

REACTIONS (20)
  - BREAST CANCER FEMALE [None]
  - ANKLE FRACTURE [None]
  - BODY HEIGHT DECREASED [None]
  - ACUTE SINUSITIS [None]
  - APHTHOUS STOMATITIS [None]
  - FEMUR FRACTURE [None]
  - LOOSE TOOTH [None]
  - SPINAL DISORDER [None]
  - PERIORBITAL CELLULITIS [None]
  - LIPOMA [None]
  - FALL [None]
  - MUSCLE SPASMS [None]
  - BRONCHITIS [None]
  - BONE CYST [None]
  - RADIUS FRACTURE [None]
  - FATIGUE [None]
  - EYE ALLERGY [None]
  - HYPERLIPIDAEMIA [None]
  - SPINAL COMPRESSION FRACTURE [None]
  - LOW TURNOVER OSTEOPATHY [None]
